FAERS Safety Report 8129819-0 (Version None)
Quarter: 2012Q1

REPORT INFORMATION
  Report Type: 
  Country: None (occurrence: None)
  Receive Date: 20120210
  Receipt Date: 20120210
  Transmission Date: 20120608
  Serious: Yes (Other)
  Sender: FDA-Public Use
  Company Number: None

PATIENT
  Age: 89 Year
  Sex: Female
  Weight: 44.452 kg

DRUGS (1)
  1. DEXILANT [Suspect]
     Indication: DYSPEPSIA
     Dosage: 60.0 MG
     Route: 048
     Dates: start: 20120127, end: 20120127

REACTIONS (7)
  - DYSPHONIA [None]
  - HALLUCINATION, VISUAL [None]
  - FALL [None]
  - HEAD INJURY [None]
  - DIARRHOEA [None]
  - OROPHARYNGEAL PAIN [None]
  - FEELING ABNORMAL [None]
